FAERS Safety Report 4703157-8 (Version None)
Quarter: 2005Q2

REPORT INFORMATION
  Report Type: 
  Country: None (occurrence: None)
  Receive Date: 20050629
  Receipt Date: 20050601
  Transmission Date: 20051028
  Serious: Yes (Other)
  Sender: FDA-Public Use
  Company Number: US-BRISTOL-MYERS SQUIBB COMPANY-12990487

PATIENT
  Age: 76 Year
  Sex: Female

DRUGS (6)
  1. TEQUIN [Suspect]
     Indication: CATARACT OPERATION
     Route: 031
     Dates: start: 20050523
  2. KENALOG [Suspect]
     Indication: CATARACT OPERATION
     Route: 031
     Dates: start: 20050523
  3. ZYMAR [Concomitant]
  4. GLUCOPHAGE [Concomitant]
  5. PAXIL [Concomitant]
  6. NEXIUM [Concomitant]

REACTIONS (3)
  - BLINDNESS [None]
  - EYE PAIN [None]
  - INFLAMMATION [None]
